FAERS Safety Report 5525753-0 (Version None)
Quarter: 2007Q4

REPORT INFORMATION
  Report Type: 
  Country: None (occurrence: None)
  Receive Date: 20071126
  Receipt Date: 20071112
  Transmission Date: 20080405
  Serious: Yes (Hospitalization)
  Sender: FDA-Public Use
  Company Number: DE-ASTRAZENECA-2007PK02352

PATIENT
  Age: 41 Year
  Sex: Female

DRUGS (5)
  1. SEROQUEL [Suspect]
     Dosage: 25 MG TO 300 MG
     Route: 048
     Dates: start: 20070226, end: 20070304
  2. SEROQUEL [Suspect]
     Dosage: 375 MG TO 850 MG
     Route: 048
     Dates: start: 20070305, end: 20070319
  3. SEROQUEL [Suspect]
     Dosage: 375 MG TO 850 MG
     Route: 048
     Dates: start: 20070320, end: 20070402
  4. SEROQUEL [Suspect]
     Route: 048
     Dates: start: 20070403
  5. VALPROATE SODIUM [Suspect]
     Route: 048
     Dates: start: 20070120

REACTIONS (1)
  - NEUTROPENIA [None]
